FAERS Safety Report 21673375 (Version 1)
Quarter: 2022Q4

REPORT INFORMATION
  Report Type: Spontaneous
  Country: GB (occurrence: GB)
  Receive Date: 20221202
  Receipt Date: 20221202
  Transmission Date: 20230112
  Serious: No
  Sender: FDA-Public Use
  Company Number: GB-GSK-GB2022EME179640

PATIENT

DRUGS (3)
  1. SOTROVIMAB [Suspect]
     Active Substance: SOTROVIMAB
     Indication: Product used for unknown indication
     Dosage: UNK
     Dates: start: 20221129
  2. SOTROVIMAB [Suspect]
     Active Substance: SOTROVIMAB
     Dosage: UNK
  3. SOTROVIMAB [Suspect]
     Active Substance: SOTROVIMAB
     Dosage: UNK

REACTIONS (5)
  - Cough [Unknown]
  - Dyspnoea [Unknown]
  - Tachycardia [Unknown]
  - Pulmonary mass [Unknown]
  - Asthma [Unknown]
